FAERS Safety Report 13561335 (Version 1)
Quarter: 2017Q2

REPORT INFORMATION
  Report Type: Spontaneous
  Country: US (occurrence: US)
  Receive Date: 20170518
  Receipt Date: 20170518
  Transmission Date: 20170830
  Serious: No
  Sender: FDA-Public Use
  Company Number: PHEH2017US014850

PATIENT
  Sex: Female

DRUGS (1)
  1. TAFINLAR [Suspect]
     Active Substance: DABRAFENIB MESYLATE
     Indication: HEPATIC CANCER
     Dosage: 150 MG, BID
     Route: 048
     Dates: start: 20160513, end: 20170411

REACTIONS (1)
  - Drug ineffective [Unknown]
